FAERS Safety Report 11433884 (Version 1)
Quarter: 2015Q3

REPORT INFORMATION
  Report Type: Spontaneous
  Country: GB (occurrence: GB)
  Receive Date: 20150831
  Receipt Date: 20150831
  Transmission Date: 20151125
  Serious: Yes (Other)
  Sender: FDA-Public Use
  Company Number: GB-BAYER-2015-404056

PATIENT
  Sex: Male

DRUGS (1)
  1. ANTIHEMOPHILIC FACTOR (HUMAN) NOS [Suspect]
     Active Substance: ANTIHEMOPHILIC FACTOR HUMAN

REACTIONS (5)
  - Drug prescribing error [None]
  - Injury [None]
  - Chronic hepatitis C [None]
  - Suicide attempt [None]
  - Mental disorder [None]
